FAERS Safety Report 5008266-4 (Version None)
Quarter: 2006Q1

REPORT INFORMATION
  Report Type: 
  Country: None (occurrence: None)
  Receive Date: 20060331
  Receipt Date: 20050405
  Transmission Date: 20060701
  Serious: Yes (Hospitalization)
  Sender: FDA-Public Use
  Company Number: WAES 0504USA00620

PATIENT
  Sex: 0

DRUGS (1)
  1. CANCIDAS [Suspect]
     Dosage: IV
     Route: 042

REACTIONS (1)
  - SWELLING FACE [None]
